FAERS Safety Report 6934153-8 (Version None)
Quarter: 2010Q3

REPORT INFORMATION
  Report Type: 
  Country: None (occurrence: None)
  Receive Date: 20100820
  Receipt Date: 20100809
  Transmission Date: 20110219
  Serious: Yes (Other)
  Sender: FDA-Public Use
  Company Number: US-PFIZER INC-2010089075

PATIENT
  Sex: Male
  Weight: 63 kg

DRUGS (14)
  1. MECLIZINE HCL [Suspect]
     Indication: BALANCE DISORDER
     Dosage: 10 MG, 2X/DAY
     Route: 048
     Dates: start: 19900101, end: 20080101
  2. MECLIZINE HCL [Suspect]
     Dosage: 25 MG, 2X/DAY
  3. MECLIZINE HCL [Suspect]
     Dosage: 25 MG, 3X/DAY
  4. MECLIZINE HCL [Suspect]
     Dosage: 25 MG, 4X/DAY
  5. TAMSULOSIN HYDROCHLORIDE [Concomitant]
     Indication: POLLAKIURIA
     Dosage: 0.4 MG, 2X/DAY
     Route: 048
  6. LOPRESSOR [Concomitant]
     Indication: ANTICOAGULANT THERAPY
     Dosage: 50 MG, 1X/DAY
     Route: 048
  7. LIPITOR [Concomitant]
     Indication: ANTICOAGULANT THERAPY
     Dosage: 20 MG, 1X/DAY
     Route: 048
  8. ZANTAC [Concomitant]
     Indication: GASTROOESOPHAGEAL REFLUX DISEASE
     Dosage: 150 MG, 2X/DAY
     Route: 048
  9. QVAR 40 [Concomitant]
     Indication: EMPHYSEMA
     Dosage: 80 UG, 2X/DAY
     Route: 055
  10. COMBIVENT [Concomitant]
     Indication: EMPHYSEMA
     Dosage: 14.7 G, 2X/DAY
     Route: 055
  11. ATROVENT [Concomitant]
     Indication: EMPHYSEMA
     Dosage: 12.9 G, AS NEEDED
     Route: 055
  12. PHENOBARBITAL [Concomitant]
     Indication: CONVULSION
     Dosage: 30 MG, 3X/DAY
     Route: 048
  13. DILANTIN [Concomitant]
     Indication: CONVULSION
     Dosage: 100 MG, 4X/DAY
     Route: 048
  14. LIBRIUM [Concomitant]
     Indication: ALCOHOLISM
     Dosage: 10 MG, 1X/DAY
     Route: 048

REACTIONS (2)
  - CLAVICLE FRACTURE [None]
  - DRUG INEFFECTIVE [None]
